FAERS Safety Report 7772063-7 (Version None)
Quarter: 2011Q3

REPORT INFORMATION
  Report Type: 
  Country: None (occurrence: None)
  Receive Date: 20110922
  Receipt Date: 20110209
  Transmission Date: 20111222
  Serious: Yes (Other)
  Sender: FDA-Public Use
  Company Number: US-ASTRAZENECA-2007UW04348

PATIENT
  Age: 18473 Day
  Sex: Male
  Weight: 102.5 kg

DRUGS (10)
  1. WELLBUTRIN [Concomitant]
     Indication: DEPRESSION
     Dates: start: 20040101
  2. GEMFIBROZIL [Concomitant]
     Indication: BLOOD CHOLESTEROL INCREASED
     Dates: start: 20080101
  3. CLONIDINE HCL [Concomitant]
     Dosage: 0.1
     Dates: start: 20040510
  4. SEROQUEL [Suspect]
     Indication: ANXIETY
     Route: 048
     Dates: start: 20030218, end: 20060218
  5. HYDROCHLOROTHIAZID [Concomitant]
     Dates: start: 20040510
  6. RISPERDAL [Concomitant]
     Dosage: ONE TABLET X DAILY
     Dates: start: 20060611
  7. SEROQUEL [Suspect]
     Dosage: 25 TO 100 MG
     Route: 048
     Dates: start: 20040510
  8. GEMFIBROZIL [Concomitant]
     Indication: HYPERLIPIDAEMIA
     Dates: start: 20080101
  9. SEROQUEL [Suspect]
     Indication: DEPRESSION
     Route: 048
     Dates: start: 20030218, end: 20060218
  10. SEROQUEL [Suspect]
     Dosage: 25 TO 100 MG
     Route: 048
     Dates: start: 20040510

REACTIONS (5)
  - TYPE 2 DIABETES MELLITUS [None]
  - BLOOD CHOLESTEROL INCREASED [None]
  - HYPERLIPIDAEMIA [None]
  - ERECTILE DYSFUNCTION [None]
  - PANCREATITIS [None]
